FAERS Safety Report 7605097-3 (Version None)
Quarter: 2011Q3

REPORT INFORMATION
  Report Type: 
  Country: None (occurrence: None)
  Receive Date: 20110713
  Receipt Date: 20100116
  Transmission Date: 20111222
  Serious: Yes (Death, Other)
  Sender: FDA-Public Use
  Company Number: US-BAYER-201011370NA

PATIENT
  Sex: Male
  Weight: 63 kg

DRUGS (29)
  1. TRASYLOL [Suspect]
     Indication: AORTIC VALVE REPLACEMENT
     Dosage: 100 ML IN HEMODILUTION PERFUSION PUMP
     Route: 042
     Dates: start: 20040526, end: 20040526
  2. INDERAL [Concomitant]
     Dosage: 5 MG, QD
     Route: 048
  3. NITROGLYCERIN [Concomitant]
     Dosage: 50MG/250ML, UNK
     Route: 042
     Dates: start: 20040526, end: 20040526
  4. COENZYME A [Concomitant]
     Dosage: QD
     Route: 048
  5. PLAVIX [Concomitant]
     Dosage: 75 MG, QD
     Route: 048
  6. ASPIRIN [Concomitant]
     Dosage: 81 MG, QD
     Route: 048
  7. LIDOCAINE [Concomitant]
     Dosage: 100 MG, UNK
     Route: 042
     Dates: start: 20040526, end: 20040526
  8. TRASYLOL [Suspect]
     Indication: TRICUSPID VALVE REPAIR
     Dosage: 100 ML/15 ML/HOUR (LOADING DOSE)
     Route: 042
     Dates: start: 20040526, end: 20040526
  9. IMDUR [Concomitant]
     Dosage: 120 MG, QD
     Route: 048
  10. NITROGLYCERIN [Concomitant]
     Dosage: 0.4 MG, PRN
     Route: 048
  11. TEGRETOL [Concomitant]
     Dosage: 100 MG/5ML SUSPENSION, QD
     Route: 048
  12. ATACAND HCT [Concomitant]
     Dosage: 16 MG, QD
     Route: 048
  13. VERSED [Concomitant]
     Dosage: 3 MG, UNK
     Route: 042
     Dates: start: 20040526, end: 20040526
  14. PHENYLEPHRINE HCL [Concomitant]
     Dosage: 300 MCG, UNK
     Route: 042
     Dates: start: 20040526, end: 20040526
  15. TRASYLOL [Suspect]
     Dosage: 25 ML HOUR INFUSION (LOADING DOSE)
     Route: 042
     Dates: start: 20040526, end: 20040526
  16. EPINEPHRINE [Concomitant]
     Dosage: 20 MCG, UNK
     Route: 042
     Dates: start: 20040526, end: 20040526
  17. TRASYLOL [Suspect]
     Indication: CORONARY ARTERY BYPASS
     Dosage: 1 ML (TEST DOSE)
     Route: 042
     Dates: start: 20040526, end: 20040526
  18. PRAVACHOL [Concomitant]
     Dosage: 20 MG QD
     Route: 048
  19. IMDUR [Concomitant]
     Dosage: 60 MG, QD
     Route: 048
  20. ARICEPT [Concomitant]
     Dosage: 5 MG, QD
     Route: 048
  21. REPLAGAL [Concomitant]
     Dosage: 2 Q1MON
     Route: 048
  22. LASIX [Concomitant]
     Dosage: 40 MG, UNK
     Route: 042
     Dates: start: 20040526, end: 20040526
  23. MOSEGOR [Concomitant]
     Dosage: 5 MG, QD
     Route: 048
  24. PRIMACOR [Concomitant]
     Dosage: 9 ML/ HOUR, UNK
     Route: 042
     Dates: start: 20040526
  25. NORVASC [Concomitant]
     Dosage: 2.5 MG, QD
     Route: 048
  26. VITAMIN E [Concomitant]
     Dosage: 400 IU, QD
     Route: 048
  27. LASIX [Concomitant]
     Dosage: 20 MG, QD
     Route: 048
  28. LASIX [Concomitant]
     Dosage: 60 MG, QD
     Route: 048
  29. HYDRALAZINE HCL [Concomitant]
     Dosage: 25 MG, QD
     Route: 048

REACTIONS (14)
  - RENAL FAILURE [None]
  - CARDIAC DISORDER [None]
  - ANXIETY [None]
  - PAIN [None]
  - DEATH [None]
  - RENAL IMPAIRMENT [None]
  - CEREBROVASCULAR ACCIDENT [None]
  - DEPRESSION [None]
  - ANHEDONIA [None]
  - ORGAN FAILURE [None]
  - RENAL INJURY [None]
  - UNEVALUABLE EVENT [None]
  - INJURY [None]
  - FEAR [None]
